FAERS Safety Report 9324506 (Version 1)
Quarter: 2013Q2

REPORT INFORMATION
  Report Type: Spontaneous
  Country: US (occurrence: None)
  Receive Date: 20130531
  Receipt Date: 20130531
  Transmission Date: 20140414
  Serious: Yes (Life-Threatening)
  Sender: FDA-Public Use
  Company Number: None

PATIENT
  Age: 33 Year
  Sex: Female
  Weight: 92.53 kg

DRUGS (1)
  1. BUPRENORPHINE AND NALOXONE [Suspect]
     Indication: TIBIA FRACTURE
     Dosage: 8 - 2 MG 3 ONCE A DAY
     Dates: start: 20130511, end: 20130526

REACTIONS (3)
  - Rash [None]
  - Dyspepsia [None]
  - Skin irritation [None]
